FAERS Safety Report 6404999-3 (Version None)
Quarter: 2009Q4

REPORT INFORMATION
  Report Type: 
  Country: None (occurrence: None)
  Receive Date: 20091019
  Receipt Date: 20090922
  Transmission Date: 20100525
  Serious: Yes (Other)
  Sender: FDA-Public Use
  Company Number: US-PFIZER INC-2009250833

PATIENT
  Sex: Female
  Weight: 83.007 kg

DRUGS (12)
  1. CHANTIX [Suspect]
     Indication: SMOKING CESSATION THERAPY
     Dosage: FREQUENCY: 2X/DAY, EVERYDAY;
     Route: 048
     Dates: start: 20090624
  2. CLONAZEPAM [Concomitant]
     Dosage: UNK
     Route: 048
  3. SEROQUEL [Concomitant]
     Indication: SCHIZOPHRENIA
     Dosage: 300 MG, UNK
     Route: 048
  4. THEOPHYLLINE [Concomitant]
     Indication: ASTHMA
     Dosage: 300 MG, UNK
     Route: 048
  5. SEREVENT [Concomitant]
     Indication: ASTHMA
     Dosage: UNK
  6. PROAIR HFA [Concomitant]
     Indication: ASTHMA
     Dosage: UNK
  7. ASPIRIN [Concomitant]
     Indication: MYOCARDIAL INFARCTION
     Dosage: 81 MG, UNK
     Route: 048
  8. LUNESTA [Concomitant]
     Dosage: UNK
     Route: 048
  9. DILANTIN [Concomitant]
     Indication: GRAND MAL CONVULSION
     Dosage: 100 MG, 2X/DAY
     Route: 048
  10. OXCARBAZEPINE [Concomitant]
     Dosage: UNK
     Route: 048
  11. ASPIRIN [Concomitant]
     Indication: MIGRAINE
     Dosage: 325 MG, AS NEEDED
  12. ADVAIR DISKUS 100/50 [Concomitant]

REACTIONS (2)
  - HOMICIDAL IDEATION [None]
  - PHARYNGEAL OEDEMA [None]
